FAERS Safety Report 23293393 (Version 1)
Quarter: 2023Q4

REPORT INFORMATION
  Report Type: Spontaneous
  Country: US (occurrence: US)
  Receive Date: 20231213
  Receipt Date: 20231213
  Transmission Date: 20240110
  Serious: Yes (Death, Hospitalization, Other)
  Sender: FDA-Public Use
  Company Number: US-SUN PHARMACEUTICAL INDUSTRIES LTD-2023R1-423321

PATIENT
  Age: 17 Year
  Sex: Female

DRUGS (11)
  1. TADALAFIL [Suspect]
     Active Substance: TADALAFIL
     Indication: Pulmonary hypertension
     Dosage: UNK
     Route: 065
  2. DOBUTAMINE [Suspect]
     Active Substance: DOBUTAMINE HYDROCHLORIDE
     Indication: Pulmonary hypertension
     Dosage: UNK
     Route: 065
  3. BOSENTAN [Suspect]
     Active Substance: BOSENTAN
     Indication: Pulmonary hypertension
     Dosage: UNK
     Route: 065
  4. FUROSEMIDE [Suspect]
     Active Substance: FUROSEMIDE
     Indication: Pulmonary hypertension
     Dosage: UNK
     Route: 065
  5. ENOXAPARIN SODIUM [Suspect]
     Active Substance: ENOXAPARIN SODIUM
     Indication: Pulmonary hypertension
     Dosage: UNK
     Route: 058
  6. VASOPRESSIN [Suspect]
     Active Substance: VASOPRESSIN
     Indication: Pulmonary hypertension
     Dosage: UNK
     Route: 065
  7. ILOPROST [Suspect]
     Active Substance: ILOPROST
     Indication: Pulmonary hypertension
     Dosage: UNK
     Route: 065
  8. SELEXIPAG [Suspect]
     Active Substance: SELEXIPAG
     Indication: Pulmonary hypertension
     Dosage: 200 MICROGRAM, BID
     Route: 048
  9. SELEXIPAG [Suspect]
     Active Substance: SELEXIPAG
     Dosage: 200 UNK
     Route: 048
  10. SELEXIPAG [Suspect]
     Active Substance: SELEXIPAG
     Dosage: 1600 MICROGRAM, BID
     Route: 048
  11. SELEXIPAG [Suspect]
     Active Substance: SELEXIPAG
     Dosage: 1800 MICROGRAM
     Route: 048

REACTIONS (6)
  - Exposure during pregnancy [Unknown]
  - Premature delivery [Unknown]
  - Cardiac arrest [Fatal]
  - Syncope [Unknown]
  - N-terminal prohormone brain natriuretic peptide increased [Unknown]
  - Weight increased [Unknown]
